FAERS Safety Report 24193273 (Version 2)
Quarter: 2025Q4

REPORT INFORMATION
  Report Type: Spontaneous
  Country: US (occurrence: US)
  Receive Date: 20240809
  Receipt Date: 20251006
  Transmission Date: 20260117
  Serious: Yes (Life-Threatening, Hospitalization)
  Sender: MYLAN
  Company Number: US-MYLANLABS-2024M1071618

PATIENT
  Age: 15 Year
  Sex: Male

DRUGS (1)
  1. ACETAMINOPHEN [Suspect]
     Active Substance: ACETAMINOPHEN
     Indication: Product used for unknown indication
     Dosage: 195 GRAM, INGESTED APPROXIMATELY 195G OF EXTENDED RELEASE ACETAMINOPHEN

REACTIONS (11)
  - Overdose [Recovering/Resolving]
  - Toxicity to various agents [Recovering/Resolving]
  - Mental status changes [Recovering/Resolving]
  - Hypertransaminasaemia [Recovering/Resolving]
  - Blood lactic acid increased [Recovering/Resolving]
  - International normalised ratio increased [Recovered/Resolved]
  - Intentional product misuse [Recovering/Resolving]
  - Liver injury [Recovering/Resolving]
  - Mitochondrial toxicity [Recovering/Resolving]
  - Metabolic acidosis [Recovering/Resolving]
  - Nausea [Unknown]
